FAERS Safety Report 11890690 (Version 2)
Quarter: 2016Q3

REPORT INFORMATION
  Report Type: Spontaneous
  Country: IT (occurrence: IT)
  Receive Date: 20160105
  Receipt Date: 20160715
  Transmission Date: 20161109
  Serious: Yes (Other)
  Sender: FDA-Public Use
  Company Number: IT-AMGEN-ITASP2015140596

PATIENT
  Age: 33 Year
  Sex: Male
  Weight: 80 kg

DRUGS (1)
  1. ENBREL [Suspect]
     Active Substance: ETANERCEPT
     Indication: PSORIASIS
     Dosage: 25 MG, CYCLIC
     Route: 058
     Dates: start: 2005, end: 2015

REACTIONS (1)
  - Chronic lymphocytic leukaemia [Not Recovered/Not Resolved]

NARRATIVE: CASE EVENT DATE: 20150630
